FAERS Safety Report 24266227 (Version 1)
Quarter: 2024Q3

REPORT INFORMATION
  Report Type: Spontaneous
  Country: US (occurrence: None)
  Receive Date: 20240830
  Receipt Date: 20240830
  Transmission Date: 20241017
  Serious: No
  Sender: AXSOME THERAPEUTICS
  Company Number: US-Axsome Therapeutics, Inc.-AXS202406-000879

PATIENT
  Age: 76 Year
  Sex: Female

DRUGS (7)
  1. AUVELITY [Suspect]
     Active Substance: BUPROPION HYDROCHLORIDE\DEXTROMETHORPHAN HYDROBROMIDE
     Indication: Major depression
     Route: 048
     Dates: start: 20240617, end: 20240617
  2. BREZTRI [Concomitant]
     Active Substance: BUDESONIDE\FORMOTEROL\GLYCOPYRROLATE
     Indication: Product used for unknown indication
     Dosage: UNK
     Route: 065
  3. GAMMAGARD [Concomitant]
     Active Substance: HUMAN IMMUNOGLOBULIN G
     Indication: Product used for unknown indication
     Dosage: UNK
     Route: 065
  4. SINGULAIR [Concomitant]
     Active Substance: MONTELUKAST SODIUM
     Indication: Product used for unknown indication
     Dosage: UNK
     Route: 065
  5. ROSUVASTATIN [Concomitant]
     Active Substance: ROSUVASTATIN\ROSUVASTATIN CALCIUM
     Indication: Product used for unknown indication
     Dosage: UNK
     Route: 065
  6. ZETONNA [Concomitant]
     Active Substance: CICLESONIDE
     Indication: Product used for unknown indication
     Dosage: UNK
     Route: 065
  7. Brompheniramine-pseudoephed [Concomitant]
     Indication: Product used for unknown indication
     Dosage: UNK
     Route: 065

REACTIONS (4)
  - Loss of personal independence in daily activities [Unknown]
  - Dizziness [Unknown]
  - Fatigue [Unknown]
  - Somnolence [Unknown]

NARRATIVE: CASE EVENT DATE: 20240618
